FAERS Safety Report 8330523-4 (Version None)
Quarter: 2012Q2

REPORT INFORMATION
  Report Type: 
  Country: None (occurrence: None)
  Receive Date: 20120502
  Receipt Date: 20120403
  Transmission Date: 20120825
  Serious: No
  Sender: FDA-Public Use
  Company Number: US-AMGEN-USASP2012021208

PATIENT
  Sex: Male

DRUGS (1)
  1. ENBREL [Suspect]
     Indication: ANKYLOSING SPONDYLITIS
     Dosage: UNK UNK, QWK
     Route: 058
     Dates: start: 20110224

REACTIONS (4)
  - STAPHYLOCOCCAL INFECTION [None]
  - INFECTION [None]
  - DRUG INEFFECTIVE [None]
  - CONDITION AGGRAVATED [None]
